FAERS Safety Report 7114569-X (Version None)
Quarter: 2010Q4

REPORT INFORMATION
  Report Type: 
  Country: None (occurrence: None)
  Receive Date: 20101120
  Receipt Date: 20101105
  Transmission Date: 20110411
  Serious: No
  Sender: FDA-Public Use
  Company Number: US-ROXANE LABORATORIES, INC.-2010-RO-01359RO

PATIENT
  Sex: Male
  Weight: 104 kg

DRUGS (22)
  1. OXYMORPHONE HYDROCHLORIDE [Suspect]
     Indication: BACK DISORDER
     Dosage: 80 MG
     Route: 048
     Dates: start: 20101013
  2. OXYMORPHONE HYDROCHLORIDE [Suspect]
     Indication: JOINT INJURY
  3. AMLODIPINE [Suspect]
     Indication: BLOOD PRESSURE
     Dosage: 10 MG
     Route: 048
  4. ALBUTEROL [Concomitant]
     Route: 048
  5. ASPIRIN [Concomitant]
     Dosage: 81 MG
     Route: 048
  6. CLONAZEPAM [Concomitant]
     Dosage: 1 MG
     Route: 048
  7. V CYANTOR (B12) [Concomitant]
     Route: 030
  8. NPH INSULIN [Concomitant]
     Indication: DIABETES MELLITUS
     Route: 058
  9. LISINOPRIL [Concomitant]
     Indication: BLOOD PRESSURE
     Dosage: 40 MG
     Route: 048
  10. METOPROLOL TARTRATE [Concomitant]
     Indication: BLOOD PRESSURE
     Dosage: 300 MG
     Route: 048
  11. OMEPRAZOLE [Concomitant]
     Indication: ABDOMINAL DISCOMFORT
     Dosage: 40 MG
  12. PHENERGAN [Concomitant]
  13. OPANA [Concomitant]
     Dosage: 40 MG
  14. SIMVASTATIN [Concomitant]
     Indication: BLOOD CHOLESTEROL
     Dosage: 80 MG
  15. LORATADINE [Concomitant]
  16. ONDANSETRON [Concomitant]
     Dosage: 8 MG
  17. NICOTINE [Concomitant]
     Route: 062
  18. NICOTINE [Concomitant]
     Route: 062
  19. NICOTINE [Concomitant]
     Route: 062
  20. CETIRIZINE HCL [Concomitant]
     Dosage: 10 MG
     Route: 048
  21. CLOPIDOGREL [Concomitant]
     Dosage: 75 MG
     Route: 048
  22. NOVOLIN R [Concomitant]
     Route: 058

REACTIONS (7)
  - ABDOMINAL PAIN UPPER [None]
  - CHEST PAIN [None]
  - DRUG INEFFECTIVE [None]
  - NAUSEA [None]
  - PRODUCT TASTE ABNORMAL [None]
  - TABLET ISSUE [None]
  - VOMITING [None]
